FAERS Safety Report 17053614 (Version 1)
Quarter: 2019Q4

REPORT INFORMATION
  Report Type: Report from Study
  Country: CN (occurrence: CN)
  Receive Date: 20191120
  Receipt Date: 20191120
  Transmission Date: 20200122
  Serious: Yes (Hospitalization)
  Sender: FDA-Public Use
  Company Number: CN-BAYER-2019-203948

PATIENT
  Sex: Male

DRUGS (1)
  1. NEXAVAR [Suspect]
     Active Substance: SORAFENIB
     Indication: HEPATOCELLULAR CARCINOMA
     Dosage: 40 MG, BID
     Route: 048
     Dates: start: 20190722, end: 2019

REACTIONS (2)
  - Feeding disorder [None]
  - Abdominal distension [Unknown]

NARRATIVE: CASE EVENT DATE: 2019
